FAERS Safety Report 7755824-X (Version None)
Quarter: 2011Q3

REPORT INFORMATION
  Report Type: 
  Country: None (occurrence: None)
  Receive Date: 20110915
  Receipt Date: 20110915
  Transmission Date: 20111222
  Serious: No
  Sender: FDA-Public Use
  Company Number: None

PATIENT
  Sex: Female
  Weight: 55.8 kg

DRUGS (2)
  1. CARBOPLATIN [Suspect]
     Dosage: 600 MG
     Dates: end: 20110912
  2. PACLITAXEL [Suspect]
     Dosage: 120 MG
     Dates: end: 20110912

REACTIONS (4)
  - PAIN IN EXTREMITY [None]
  - PLANTAR FASCIITIS [None]
  - ABASIA [None]
  - MYALGIA [None]
